FAERS Safety Report 10515466 (Version 1)
Quarter: 2014Q4

REPORT INFORMATION
  Report Type: Spontaneous
  Country: US (occurrence: None)
  Receive Date: 20141009
  Receipt Date: 20141009
  Transmission Date: 20150528
  Serious: Yes (Life-Threatening, Hospitalization)
  Sender: FDA-Public Use
  Company Number: 153679

PATIENT
  Sex: Female
  Weight: 102 kg

DRUGS (1)
  1. CYTARABINE. [Suspect]
     Active Substance: CYTARABINE
     Indication: ACUTE MYELOID LEUKAEMIA
     Dates: start: 20130730, end: 20130802

REACTIONS (8)
  - Deep vein thrombosis [None]
  - Thrombocytopenia [None]
  - Sepsis [None]
  - Cholecystitis acute [None]
  - Bacillus infection [None]
  - Febrile neutropenia [None]
  - Respiratory failure [None]
  - Post procedural haemorrhage [None]

NARRATIVE: CASE EVENT DATE: 20130802
